FAERS Safety Report 11693085 (Version 1)
Quarter: 2015Q4

REPORT INFORMATION
  Report Type: Spontaneous
  Country: US (occurrence: US)
  Receive Date: 20151103
  Receipt Date: 20151103
  Transmission Date: 20160304
  Serious: No
  Sender: FDA-Public Use
  Company Number: US-009507513-1510USA009895

PATIENT
  Sex: Female

DRUGS (2)
  1. NASONEX [Suspect]
     Active Substance: MOMETASONE FUROATE
     Indication: RHINITIS
     Dosage: 50 MCG/2 PUFF IN EACH NOSTRIL ONCE DAILY
     Route: 045
     Dates: end: 20151016
  2. FLONASE [Suspect]
     Active Substance: FLUTICASONE PROPIONATE
     Dosage: UNK

REACTIONS (7)
  - Throat irritation [Unknown]
  - Disease recurrence [Unknown]
  - Vision blurred [Unknown]
  - Nasal discomfort [Unknown]
  - Drug dose omission [Unknown]
  - Rhinitis [Unknown]
  - Heart rate increased [Unknown]

NARRATIVE: CASE EVENT DATE: 201510
